FAERS Safety Report 17920104 (Version 2)
Quarter: 2020Q4

REPORT INFORMATION
  Report Type: Report from Study
  Country: None (occurrence: CA)
  Receive Date: 20200620
  Receipt Date: 20201222
  Transmission Date: 20210113
  Serious: Yes (Other)
  Sender: FDA-Public Use
  Company Number: CA-ABBVIE-20K-028-3449920-00

PATIENT
  Sex: Female

DRUGS (2)
  1. HUMIRA [Suspect]
     Active Substance: ADALIMUMAB
     Indication: RHEUMATOID ARTHRITIS
     Route: 058
     Dates: start: 20200313
  2. METHOTREXATE. [Suspect]
     Active Substance: METHOTREXATE
     Indication: PRODUCT USED FOR UNKNOWN INDICATION
     Route: 065
     Dates: start: 2020

REACTIONS (11)
  - Anaemia [Recovered/Resolved]
  - Injection site pain [Not Recovered/Not Resolved]
  - Pain in extremity [Unknown]
  - Haemorrhage [Recovered/Resolved]
  - Foot deformity [Not Recovered/Not Resolved]
  - Inflammatory marker increased [Not Recovered/Not Resolved]
  - Peripheral swelling [Unknown]
  - Hormone level abnormal [Recovered/Resolved]
  - Scar [Recovering/Resolving]
  - Injection site rash [Not Recovered/Not Resolved]
  - Platelet count decreased [Unknown]

NARRATIVE: CASE EVENT DATE: 2020
